FAERS Safety Report 6448249-0 (Version None)
Quarter: 2009Q4

REPORT INFORMATION
  Report Type: 
  Country: None (occurrence: None)
  Receive Date: 20091120
  Receipt Date: 20091109
  Transmission Date: 20100525
  Serious: Yes (Hospitalization, Other)
  Sender: FDA-Public Use
  Company Number: ES-BRISTOL-MYERS SQUIBB COMPANY-14850895

PATIENT
  Age: 37 Year
  Sex: Male

DRUGS (4)
  1. ATAZANAVIR [Suspect]
     Indication: ANTIRETROVIRAL THERAPY
     Dosage: STARTED WITH 300 QD;INCREASED TO 400MG QD THEN WITHDRAWN
  2. DIDANOSINE [Suspect]
     Indication: ANTIRETROVIRAL THERAPY
     Dosage: REDUCED TO 125MG QD;THEN WITHDRAWN
  3. LAMIVUDINE [Suspect]
     Indication: ANTIRETROVIRAL THERAPY
     Dosage: REDUCED TO 150 MG QD;STOPPED AND RESTARTED WITH 150MG QD
  4. LOPINAVIR AND RITONAVIR [Suspect]
     Indication: ANTIRETROVIRAL THERAPY
     Dosage: 1 DF=400MG/100MG SUBSTITUTED WITH RITONAVIR AND RESTARTED

REACTIONS (2)
  - NEUROPATHY PERIPHERAL [None]
  - RENAL FAILURE ACUTE [None]
